FAERS Safety Report 25164228 (Version 1)
Quarter: 2025Q2

REPORT INFORMATION
  Report Type: Report from Study
  Country: US (occurrence: US)
  Receive Date: 20250405
  Receipt Date: 20250405
  Transmission Date: 20250717
  Serious: Yes (Hospitalization)
  Sender: AMGEN
  Company Number: US-AMGEN-USASL2025064696

PATIENT
  Sex: Female

DRUGS (2)
  1. LUMAKRAS [Suspect]
     Active Substance: SOTORASIB
     Indication: Lung neoplasm malignant
     Route: 065
  2. LUMAKRAS [Suspect]
     Active Substance: SOTORASIB
     Route: 065

REACTIONS (2)
  - Heart rate increased [Unknown]
  - Cardiac disorder [Unknown]
